FAERS Safety Report 14117205 (Version 1)
Quarter: 2017Q4

REPORT INFORMATION
  Report Type: Spontaneous
  Country: US (occurrence: US)
  Receive Date: 20171023
  Receipt Date: 20171023
  Transmission Date: 20180321
  Serious: No
  Sender: FDA-Public Use
  Company Number: US-PURDUE-USA-2017-0140944

PATIENT
  Age: 68 Year
  Sex: Male

DRUGS (1)
  1. OXYCONTIN [Suspect]
     Active Substance: OXYCODONE HYDROCHLORIDE
     Indication: PAIN
     Dosage: 5 MG, Q4H
     Route: 048
     Dates: start: 201701, end: 201701

REACTIONS (5)
  - Mental impairment [Recovered/Resolved]
  - Constipation [Recovered/Resolved]
  - Drug ineffective [Recovered/Resolved]
  - Decreased appetite [Recovered/Resolved]
  - Off label use [Recovered/Resolved]

NARRATIVE: CASE EVENT DATE: 201701
